FAERS Safety Report 9952883 (Version 1)
Quarter: 2014Q1

REPORT INFORMATION
  Report Type: Report from Study
  Country: US (occurrence: US)
  Receive Date: 20140304
  Receipt Date: 20140304
  Transmission Date: 20141002
  Serious: No
  Sender: FDA-Public Use
  Company Number: US-ABBVIE-13P-163-1075741-00

PATIENT
  Age: 56 Year
  Sex: Female

DRUGS (2)
  1. HUMIRA [Suspect]
     Indication: RHEUMATOID ARTHRITIS
     Route: 058
     Dates: start: 20130408
  2. VARIOUS INHALERS [Concomitant]
     Indication: ASTHMA

REACTIONS (6)
  - Fall [Recovered/Resolved]
  - Ligament sprain [Not Recovered/Not Resolved]
  - Ligament sprain [Not Recovered/Not Resolved]
  - Laceration [Not Recovered/Not Resolved]
  - Head injury [Recovered/Resolved]
  - Headache [Recovering/Resolving]
